FAERS Safety Report 12667535 (Version 1)
Quarter: 2016Q3

REPORT INFORMATION
  Report Type: Spontaneous
  Country: US (occurrence: US)
  Receive Date: 20160819
  Receipt Date: 20160819
  Transmission Date: 20161109
  Serious: No
  Sender: FDA-Public Use
  Company Number: US-PFIZER INC-2016390972

PATIENT
  Age: 59 Year
  Sex: Male
  Weight: 98.88 kg

DRUGS (3)
  1. GLIMEPIRIDE. [Interacting]
     Active Substance: GLIMEPIRIDE
     Indication: DIABETES MELLITUS
     Dosage: 25 MG
     Dates: start: 2010
  2. KOMBIGLYZE XR [Interacting]
     Active Substance: METFORMIN HYDROCHLORIDE\SAXAGLIPTIN HYDROCHLORIDE
     Indication: DIABETES MELLITUS
     Dosage: 1 DF (1000 MG/2.5 MG), 2X/DAY
     Dates: start: 2011
  3. VIAGRA [Suspect]
     Active Substance: SILDENAFIL CITRATE
     Indication: ERECTILE DYSFUNCTION
     Dosage: UNK (30-60 MINUTES PRIOR TO SEX)
     Dates: start: 2014, end: 201509

REACTIONS (3)
  - Drug interaction [Unknown]
  - Drug ineffective [Unknown]
  - Circumstance or information capable of leading to medication error [Unknown]

NARRATIVE: CASE EVENT DATE: 201508
